FAERS Safety Report 18627334 (Version 3)
Quarter: 2021Q1

REPORT INFORMATION
  Report Type: Report from Study
  Country: US (occurrence: US)
  Receive Date: 20201217
  Receipt Date: 20210115
  Transmission Date: 20210419
  Serious: Yes (Hospitalization)
  Sender: FDA-Public Use
  Company Number: NVSC2020US330839

PATIENT
  Age: 12 Year
  Sex: Female
  Weight: 50 kg

DRUGS (2)
  1. PIQRAY [Suspect]
     Active Substance: ALPELISIB
     Indication: PIK3CA RELATED OVERGROWTH SPECTRUM
     Dosage: 50 MG
     Route: 048
     Dates: start: 20201106, end: 20201203
  2. OXYCODONE [Concomitant]
     Active Substance: OXYCODONE
     Indication: PRODUCT USED FOR UNKNOWN INDICATION
     Dosage: 5 MG
     Route: 048

REACTIONS (10)
  - Pain in extremity [Recovered/Resolved]
  - Skin hyperpigmentation [Not Recovered/Not Resolved]
  - Fatigue [Recovered/Resolved]
  - Decreased appetite [Recovered/Resolved]
  - Erythema [Unknown]
  - Rash [Recovering/Resolving]
  - Skin toxicity [Recovering/Resolving]
  - Menorrhagia [Unknown]
  - Lymphopenia [Unknown]
  - Oedema [Unknown]

NARRATIVE: CASE EVENT DATE: 20201111
